FAERS Safety Report 6919456-5 (Version None)
Quarter: 2010Q3

REPORT INFORMATION
  Report Type: 
  Country: None (occurrence: None)
  Receive Date: 20100811
  Receipt Date: 20100805
  Transmission Date: 20110219
  Serious: Yes (Hospitalization)
  Sender: FDA-Public Use
  Company Number: B0668623A

PATIENT
  Sex: Female

DRUGS (2)
  1. SALBUMOL [Suspect]
     Indication: PREMATURE LABOUR
     Dosage: 1MG AS REQUIRED
     Route: 054
     Dates: start: 20100719, end: 20100721
  2. LOXEN [Concomitant]
     Indication: PREMATURE LABOUR
     Dosage: 100MG PER DAY
     Route: 042
     Dates: start: 20100719, end: 20100721

REACTIONS (2)
  - ACUTE PULMONARY OEDEMA [None]
  - DRUG EXPOSURE DURING PREGNANCY [None]
